FAERS Safety Report 14995963 (Version 3)
Quarter: 2018Q2

REPORT INFORMATION
  Report Type: Report from Study
  Country: US (occurrence: US)
  Receive Date: 20180611
  Receipt Date: 20180629
  Transmission Date: 20180711
  Serious: Yes (Other)
  Sender: FDA-Public Use
  Company Number: US-PFIZER INC-2018214980

PATIENT
  Age: 65 Year
  Sex: Female

DRUGS (2)
  1. IBRANCE [Suspect]
     Active Substance: PALBOCICLIB
     Dosage: 100 MG, CYCLIC (ONCE DAILY FOR 21 DAYS AND OFF 7 DAYS)/(21 DAYS ON AND 7 DAYS OFF)
     Route: 048
     Dates: start: 20180601
  2. IBRANCE [Suspect]
     Active Substance: PALBOCICLIB
     Indication: BREAST CANCER
     Dosage: 125 MG, ONCE A DAY
     Route: 048
     Dates: start: 20180511, end: 20180525

REACTIONS (8)
  - Dry skin [Recovered/Resolved]
  - White blood cell count decreased [Recovering/Resolving]
  - Bone marrow failure [Unknown]
  - Neck pain [Unknown]
  - Dry mouth [Recovering/Resolving]
  - Fatigue [Unknown]
  - Rash erythematous [Unknown]
  - Back pain [Unknown]

NARRATIVE: CASE EVENT DATE: 2018
